FAERS Safety Report 5311998-1 (Version None)
Quarter: 2007Q2

REPORT INFORMATION
  Report Type: 
  Country: None (occurrence: None)
  Receive Date: 20070430
  Receipt Date: 20060619
  Transmission Date: 20071010
  Serious: No
  Sender: FDA-Public Use
  Company Number: 2006UW13010

PATIENT
  Age: 45 Year
  Sex: Female
  Weight: 46.7 kg

DRUGS (6)
  1. NEXIUM [Suspect]
     Indication: BARRETT'S OESOPHAGUS
     Route: 048
  2. TYLENOL [Concomitant]
  3. ACIDOPHILUS [Concomitant]
  4. ALLEGRA [Concomitant]
  5. ALEVE [Concomitant]
  6. HYOSCYAMINE [Concomitant]

REACTIONS (5)
  - HEADACHE [None]
  - INSOMNIA [None]
  - MUSCLE SPASMS [None]
  - MYALGIA [None]
  - PAIN IN EXTREMITY [None]
